FAERS Safety Report 8506362 (Version 8)
Quarter: 2013Q1

REPORT INFORMATION
  Report Type: Spontaneous
  Country: US (occurrence: US)
  Receive Date: 20120412
  Receipt Date: 20130307
  Transmission Date: 20140127
  Serious: Yes (Hospitalization, Other)
  Sender: FDA-Public Use
  Company Number: US-009507513-1204USA01368

PATIENT
  Sex: Female
  Weight: 114.29 kg

DRUGS (7)
  1. FOSAMAX [Suspect]
     Indication: OSTEOPOROSIS
     Dosage: 70 MG, QW
     Route: 048
     Dates: start: 199603, end: 200803
  2. FOSAMAX [Suspect]
     Dosage: 10 MG, UNK
     Route: 048
     Dates: start: 19970913
  3. FOSAMAX [Suspect]
     Indication: OSTEOPOROSIS
     Dosage: 70 MG, QW
     Route: 048
     Dates: start: 2008, end: 201206
  4. FOSAMAX [Suspect]
     Dosage: 70 MG, UNK
     Route: 048
     Dates: start: 20110728
  5. ALENDRONATE SODIUM [Suspect]
     Indication: PRODUCT USED FOR UNKNOWN INDICATION
     Dosage: 70 MG, UNK
     Route: 048
     Dates: start: 20090727, end: 20090928
  6. ALENDRONATE SODIUM [Suspect]
     Indication: PRODUCT USED FOR UNKNOWN INDICATION
     Dosage: 70 MG, UNK
     Route: 048
     Dates: start: 20100920, end: 20110727
  7. ALENDRONATE SODIUM [Suspect]
     Indication: PRODUCT USED FOR UNKNOWN INDICATION
     Dosage: 70 MG, UNK
     Route: 048
     Dates: start: 20080303, end: 20081121

REACTIONS (57)
  - Femur fracture [Recovering/Resolving]
  - Open reduction of fracture [Unknown]
  - Joint surgery [Unknown]
  - Pancreatitis [Unknown]
  - Urinary tract infection [Unknown]
  - Sacroiliitis [Unknown]
  - Fall [Unknown]
  - Limb injury [Unknown]
  - Hypertension [Unknown]
  - Diabetes mellitus [Unknown]
  - Vitamin D deficiency [Unknown]
  - Adverse event [Unknown]
  - Arthritis [Unknown]
  - Wound infection [Unknown]
  - Gait disturbance [Unknown]
  - Blood cholesterol increased [Unknown]
  - Asthma [Unknown]
  - Anxiety [Unknown]
  - Venous insufficiency [Unknown]
  - Chronic obstructive pulmonary disease [Unknown]
  - Rectal haemorrhage [Unknown]
  - Hyperlipidaemia [Unknown]
  - Snoring [Unknown]
  - Nephrolithiasis [Unknown]
  - Cataract [Unknown]
  - Polyp [Unknown]
  - Osteoarthritis [Unknown]
  - Osteopenia [Unknown]
  - Osteoarthritis [Unknown]
  - Dyspnoea [Unknown]
  - Umbilical hernia [Unknown]
  - Diverticulum intestinal [Unknown]
  - Renal cyst [Unknown]
  - Rib fracture [Unknown]
  - Splenic granuloma [Unknown]
  - Hepatic cyst [Unknown]
  - Vascular calcification [Unknown]
  - Pancreatic enlargement [Unknown]
  - Pneumonia bacterial [Unknown]
  - Bronchitis [Unknown]
  - Cough [Unknown]
  - Calcium deficiency [Unknown]
  - Dementia [Unknown]
  - Osteomyelitis [Unknown]
  - Intervertebral disc disorder [Unknown]
  - Hernia [Unknown]
  - Balance disorder [Unknown]
  - Arthralgia [Not Recovered/Not Resolved]
  - Vomiting [Unknown]
  - Blood calcium decreased [Unknown]
  - Nausea [Unknown]
  - Dyspepsia [Unknown]
  - Gastrooesophageal reflux disease [Unknown]
  - Back pain [Not Recovered/Not Resolved]
  - Arthralgia [Unknown]
  - Abdominal pain upper [Unknown]
  - Local swelling [Unknown]
